FAERS Safety Report 4746580-8 (Version None)
Quarter: 2005Q3

REPORT INFORMATION
  Report Type: 
  Country: None (occurrence: None)
  Receive Date: 20050816
  Receipt Date: 20050816
  Transmission Date: 20060218
  Serious: Yes (Hospitalization)
  Sender: FDA-Public Use
  Company Number: None

PATIENT
  Age: 77 Year
  Sex: Male
  Weight: 65 kg

DRUGS (6)
  1. ASPIRIN [Suspect]
     Dosage: 81 MG PO QD [CHRONIC]
     Route: 048
  2. DIGOXIN [Concomitant]
  3. FUROSEMIDE [Concomitant]
  4. POTASSIUM CHLORIDE [Concomitant]
  5. LISINOPRIL [Concomitant]
  6. COREG [Concomitant]

REACTIONS (7)
  - DIARRHOEA [None]
  - EROSIVE DUODENITIS [None]
  - FALL [None]
  - LACERATION [None]
  - MELAENA [None]
  - PEPTIC ULCER [None]
  - SYNCOPE [None]
